FAERS Safety Report 9139337 (Version 1)
Quarter: 2013Q1

REPORT INFORMATION
  Report Type: Spontaneous
  Country: US (occurrence: US)
  Receive Date: 20130305
  Receipt Date: 20130305
  Transmission Date: 20140127
  Serious: No
  Sender: FDA-Public Use
  Company Number: US-ENDO PHARMACEUTICALS INC.-SPLN20100150

PATIENT
  Age: 9 None
  Sex: Female
  Weight: 79.6 kg

DRUGS (3)
  1. SUPPRELIN LA [Suspect]
     Indication: PRODUCT USED FOR UNKNOWN INDICATION
     Route: 058
  2. METFORMIN [Concomitant]
     Indication: PRODUCT USED FOR UNKNOWN INDICATION
     Dosage: UNK
  3. LUPRON [Concomitant]
     Indication: PRECOCIOUS PUBERTY
     Dosage: UNK
     Dates: start: 201007

REACTIONS (3)
  - Impaired healing [Unknown]
  - Device expulsion [Unknown]
  - Drug ineffective [Recovered/Resolved]
